FAERS Safety Report 5671042-3 (Version None)
Quarter: 2008Q1

REPORT INFORMATION
  Report Type: 
  Country: None (occurrence: None)
  Receive Date: 20080317
  Receipt Date: 20080317
  Transmission Date: 20080703
  Serious: Yes (Other)
  Sender: FDA-Public Use
  Company Number: None

PATIENT
  Sex: Male

DRUGS (1)
  1. DESONIDE [Suspect]
     Indication: DERMATITIS ATOPIC

REACTIONS (2)
  - DERMATITIS CONTACT [None]
  - ECZEMA [None]
